FAERS Safety Report 8074423-6 (Version None)
Quarter: 2012Q1

REPORT INFORMATION
  Report Type: 
  Country: None (occurrence: None)
  Receive Date: 20120126
  Receipt Date: 20120118
  Transmission Date: 20120608
  Serious: Yes (Death)
  Sender: FDA-Public Use
  Company Number: FR-GLAXOSMITHKLINE-B0775977A

PATIENT
  Sex: Male

DRUGS (8)
  1. REPAGLINIDE [Concomitant]
     Route: 065
  2. ASPIRIN [Concomitant]
     Route: 065
  3. LASIX [Concomitant]
     Route: 065
  4. BISOPROLOL FUMARATE [Concomitant]
     Route: 065
  5. MORPHINE SULFATE [Concomitant]
     Dates: start: 20120101
  6. RAMIPRIL [Concomitant]
     Route: 065
  7. ARIXTRA [Suspect]
     Indication: INTRACARDIAC THROMBUS
     Dosage: 7.5MG PER DAY
     Route: 058
     Dates: start: 20120102, end: 20120110
  8. POTASSIUM CHLORIDE [Concomitant]
     Route: 065

REACTIONS (2)
  - GASTROINTESTINAL HAEMORRHAGE [None]
  - DEATH [None]
